FAERS Safety Report 6813407-X (Version None)
Quarter: 2010Q3

REPORT INFORMATION
  Report Type: 
  Country: None (occurrence: None)
  Receive Date: 20100701
  Receipt Date: 20100624
  Transmission Date: 20110219
  Serious: Yes (Other)
  Sender: FDA-Public Use
  Company Number: US-PFIZER INC-2010072503

PATIENT
  Sex: Male
  Weight: 77 kg

DRUGS (10)
  1. CHANTIX [Suspect]
     Indication: SMOKING CESSATION THERAPY
     Dosage: 0.5 MG, 1X/DAY
     Route: 048
     Dates: start: 20100101
  2. CHANTIX [Suspect]
     Dosage: 1 MG, 2X/DAY
     Dates: start: 20100101
  3. PLENDIL [Concomitant]
     Indication: HYPERTENSION
     Dosage: 5 MG, 1X/DAY
     Route: 048
  4. OMEPRAZOLE [Concomitant]
     Dosage: 20 MG, 1X/DAY
     Route: 048
  5. CELEBREX [Concomitant]
     Indication: ARTHRITIS
     Dosage: 200 MG, 1X/DAY
     Route: 048
  6. FLECAINIDE [Concomitant]
     Indication: ATRIAL FIBRILLATION
     Dosage: 50 MG, 2X/DAY
     Route: 048
  7. ATACAND [Concomitant]
     Indication: HYPERTENSION
     Dosage: 32 MG, 1X/DAY
     Route: 048
  8. METOPROLOL [Concomitant]
     Indication: ATRIAL FIBRILLATION
     Dosage: 12.5 MG, 2X/DAY
     Route: 048
  9. DABIGATRAN [Concomitant]
     Indication: ANTICOAGULANT THERAPY
     Dosage: 15 MG, 2X/DAY
     Route: 048
  10. ZOCOR [Concomitant]
     Indication: BLOOD CHOLESTEROL INCREASED
     Dosage: 40 MG, 1X/DAY
     Route: 048

REACTIONS (2)
  - CARDIAC PACEMAKER INSERTION [None]
  - COGNITIVE DISORDER [None]
